FAERS Safety Report 22597532 (Version 6)
Quarter: 2023Q4

REPORT INFORMATION
  Report Type: Report from Study
  Country: US (occurrence: US)
  Receive Date: 20230614
  Receipt Date: 20231219
  Transmission Date: 20240110
  Serious: Yes (Other)
  Sender: FDA-Public Use
  Company Number: US-ABBVIE-4342960

PATIENT
  Sex: Female

DRUGS (2)
  1. RINVOQ [Suspect]
     Active Substance: UPADACITINIB
     Indication: Rheumatoid arthritis
     Dosage: FREQUENCY TEXT: UNKNOWN?STOP DATE TEXT: UNKNOWN
     Route: 048
     Dates: start: 20220804
  2. RINVOQ [Suspect]
     Active Substance: UPADACITINIB
     Indication: Rheumatoid arthritis
     Dosage: FREQUENCY TEXT: UNKNOWN?START DATE TEXT: UNKNOWN
     Route: 048

REACTIONS (6)
  - Uterine dilation and curettage [Unknown]
  - Mobility decreased [Unknown]
  - Sciatica [Not Recovered/Not Resolved]
  - Joint range of motion decreased [Unknown]
  - Dysstasia [Unknown]
  - Pain [Recovering/Resolving]

NARRATIVE: CASE EVENT DATE: 20230101
